FAERS Safety Report 16073118 (Version 4)
Quarter: 2022Q2

REPORT INFORMATION
  Report Type: Spontaneous
  Country: US (occurrence: US)
  Receive Date: 20190314
  Receipt Date: 20220502
  Transmission Date: 20220721
  Serious: No
  Sender: FDA-Public Use
  Company Number: US-PFIZER INC-2019102985

PATIENT
  Age: 53 Year
  Sex: Female

DRUGS (1)
  1. LYRICA [Suspect]
     Active Substance: PREGABALIN
     Dosage: UNK

REACTIONS (6)
  - Withdrawal syndrome [Unknown]
  - Screaming [Unknown]
  - Crying [Unknown]
  - Formication [Unknown]
  - Limb discomfort [Unknown]
  - Feeling abnormal [Unknown]
